FAERS Safety Report 13028834 (Version 1)
Quarter: 2016Q4

REPORT INFORMATION
  Report Type: Report from Study
  Country: None (occurrence: CA)
  Receive Date: 20161214
  Receipt Date: 20161214
  Transmission Date: 20170207
  Serious: Yes (Death)
  Sender: FDA-Public Use
  Company Number: CA-ABBVIE-12P-028-0973816-00

PATIENT
  Age: 89 Year
  Sex: Male
  Weight: 65.83 kg

DRUGS (3)
  1. SYNTHROID [Concomitant]
     Active Substance: LEVOTHYROXINE SODIUM
     Indication: PRODUCT USED FOR UNKNOWN INDICATION
  2. FLUTAMIDE. [Concomitant]
     Active Substance: FLUTAMIDE
     Indication: PROSTATE CANCER
     Route: 048
     Dates: start: 20110722
  3. LUPRON DEPOT [Suspect]
     Active Substance: LEUPROLIDE ACETATE
     Indication: PROSTATE CANCER
     Route: 065
     Dates: start: 20110808, end: 20110808

REACTIONS (5)
  - Death [Fatal]
  - Malnutrition [Fatal]
  - Failure to thrive [Fatal]
  - Fall [Fatal]
  - Seizure [Fatal]

NARRATIVE: CASE EVENT DATE: 20120820
